FAERS Safety Report 8270053-1 (Version None)
Quarter: 2012Q2

REPORT INFORMATION
  Report Type: 
  Country: None (occurrence: None)
  Receive Date: 20120405
  Receipt Date: 20120403
  Transmission Date: 20120825
  Serious: Yes (Other)
  Sender: FDA-Public Use
  Company Number: ADR-2011-10462

PATIENT
  Age: 11 Year
  Sex: Male

DRUGS (1)
  1. BACLOFEN [Suspect]
     Indication: MUSCLE SPASTICITY
     Dosage: MCG, DAILY, INTRATHECAL
     Route: 037

REACTIONS (7)
  - PYREXIA [None]
  - IMPLANT SITE EFFUSION [None]
  - VOMITING [None]
  - WITHDRAWAL SYNDROME [None]
  - ABDOMINAL DISTENSION [None]
  - INFLAMMATION [None]
  - INTRACRANIAL HYPOTENSION [None]
